FAERS Safety Report 21129557 (Version 2)
Quarter: 2022Q3

REPORT INFORMATION
  Report Type: Spontaneous
  Country: MX (occurrence: MX)
  Receive Date: 20220726
  Receipt Date: 20220812
  Transmission Date: 20221027
  Serious: Yes (Hospitalization, Other)
  Sender: FDA-Public Use
  Company Number: MX-BoehringerIngelheim-2022-BI-183627

PATIENT
  Age: 79 Year
  Sex: Male
  Weight: 60 kg

DRUGS (7)
  1. JARDIANCE [Suspect]
     Active Substance: EMPAGLIFLOZIN
     Indication: Diabetes mellitus
     Dosage: 1 TABLET
     Route: 065
     Dates: start: 202110, end: 20220304
  2. LINAGLIPTIN [Suspect]
     Active Substance: LINAGLIPTIN
     Indication: Diabetes mellitus
     Dosage: 1 TABLET
     Route: 065
     Dates: start: 202109, end: 20220304
  3. TRULICITY [Suspect]
     Active Substance: DULAGLUTIDE
     Indication: Type 2 diabetes mellitus
     Dosage: 0.75 MG, 1 APPLICATION EVERY 1 WEEK
     Route: 065
     Dates: start: 202109, end: 20220304
  4. TRULICITY [Suspect]
     Active Substance: DULAGLUTIDE
     Dosage: 1.5 MG
     Dates: start: 20220722
  5. TRULICITY [Suspect]
     Active Substance: DULAGLUTIDE
     Dosage: 2 INJECTIONS
     Dates: start: 20220708
  6. TRULICITY [Suspect]
     Active Substance: DULAGLUTIDE
     Dates: start: 20220715
  7. METFORMIN [Concomitant]
     Active Substance: METFORMIN HYDROCHLORIDE
     Indication: Diabetes mellitus
     Dosage: 1 TABLET
     Dates: start: 202110

REACTIONS (5)
  - Swelling [Unknown]
  - Peritonitis [Unknown]
  - Intestinal polyp [Unknown]
  - Hyperglycaemia [Unknown]
  - Hypoacusis [Unknown]

NARRATIVE: CASE EVENT DATE: 20220304
